FAERS Safety Report 12371804 (Version 1)
Quarter: 2016Q2

REPORT INFORMATION
  Report Type: Spontaneous
  Country: US (occurrence: US)
  Receive Date: 20160516
  Receipt Date: 20160516
  Transmission Date: 20160815
  Serious: No
  Sender: FDA-Public Use
  Company Number: US-GLAXOSMITHKLINE-US2016068408

PATIENT
  Age: 42 Year
  Sex: Female

DRUGS (7)
  1. VOLTAREN [Suspect]
     Active Substance: DICLOFENAC SODIUM
     Indication: ARTHRITIS
     Dosage: UNK
  2. VOLTAREN [Suspect]
     Active Substance: DICLOFENAC SODIUM
     Indication: CARPAL TUNNEL SYNDROME
  3. VOLTAREN [Suspect]
     Active Substance: DICLOFENAC SODIUM
     Indication: FIBROMYALGIA
  4. VOLTAREN [Suspect]
     Active Substance: DICLOFENAC SODIUM
     Indication: HYPERMOBILITY SYNDROME
  5. VOLTAREN [Suspect]
     Active Substance: DICLOFENAC SODIUM
     Indication: TEMPOROMANDIBULAR JOINT SYNDROME
  6. VOLTAREN [Suspect]
     Active Substance: DICLOFENAC SODIUM
     Indication: BURSITIS
  7. VOLTAREN [Suspect]
     Active Substance: DICLOFENAC SODIUM
     Indication: INTERVERTEBRAL DISC DEGENERATION

REACTIONS (4)
  - Incorrect dosage administered [Unknown]
  - Drug administered at inappropriate site [Unknown]
  - Drug prescribing error [Unknown]
  - Product use issue [Unknown]
